FAERS Safety Report 18603860 (Version 1)
Quarter: 2020Q4

REPORT INFORMATION
  Report Type: Spontaneous
  Country: US (occurrence: US)
  Receive Date: 20201210
  Receipt Date: 20201210
  Transmission Date: 20210114
  Serious: Yes (Hospitalization)
  Sender: FDA-Public Use
  Company Number: None

PATIENT
  Age: 69 Year
  Sex: Female

DRUGS (1)
  1. GLATIRAMER 40MG/ML SYR [Suspect]
     Active Substance: GLATIRAMER
     Indication: MULTIPLE SCLEROSIS
     Dosage: OTHER DOSE:1 SYR TIW SQ?
     Route: 058
     Dates: start: 20150814

REACTIONS (3)
  - COVID-19 [None]
  - Therapy interrupted [None]
  - Illness [None]

NARRATIVE: CASE EVENT DATE: 20201201
